FAERS Safety Report 7370096-6 (Version None)
Quarter: 2011Q1

REPORT INFORMATION
  Report Type: 
  Country: None (occurrence: None)
  Receive Date: 20110323
  Receipt Date: 20110310
  Transmission Date: 20110831
  Serious: Yes (Other)
  Sender: FDA-Public Use
  Company Number: PHHY2011CA19962

PATIENT
  Sex: Female

DRUGS (2)
  1. ACETAMINOPHEN [Concomitant]
  2. ACLASTA [Suspect]
     Dosage: 5 MG/100 ML/ ONCE A YEAR
     Dates: start: 20110221

REACTIONS (6)
  - NAUSEA [None]
  - DIARRHOEA [None]
  - SLEEP DISORDER [None]
  - MALAISE [None]
  - FOOT FRACTURE [None]
  - FATIGUE [None]
